FAERS Safety Report 7526030-9 (Version None)
Quarter: 2011Q2

REPORT INFORMATION
  Report Type: 
  Country: None (occurrence: None)
  Receive Date: 20110526
  Receipt Date: 20110512
  Transmission Date: 20111010
  Serious: Yes (Death, Hospitalization)
  Sender: FDA-Public Use
  Company Number: 2011AP000984

PATIENT
  Age: 64 Year
  Sex: Male

DRUGS (4)
  1. BENDROFLUMETHIAZIDE (BENDROFLUMETHIAZIDE) [Concomitant]
  2. RAMIPRIL [Suspect]
     Indication: HYPERTENSION
     Dosage: 1.25 MG;PO;QD
     Route: 048
     Dates: start: 20110326, end: 20110420
  3. BETAMETHASONE DIPROPIONATE (BETAMETHASONE DIPROPIONATE) [Concomitant]
  4. CALCIPOTRIOL (CALCIPOTRIOL) [Concomitant]

REACTIONS (9)
  - ANGIOEDEMA [None]
  - HYPOXIA [None]
  - CONVULSION [None]
  - LOCAL SWELLING [None]
  - PARAESTHESIA ORAL [None]
  - HYPOXIC-ISCHAEMIC ENCEPHALOPATHY [None]
  - HYPERSENSITIVITY [None]
  - LIP SWELLING [None]
  - RESPIRATORY TRACT OEDEMA [None]
